FAERS Safety Report 17373053 (Version 1)
Quarter: 2020Q1

REPORT INFORMATION
  Report Type: Spontaneous
  Country: TW (occurrence: TW)
  Receive Date: 20200205
  Receipt Date: 20200205
  Transmission Date: 20200409
  Serious: Yes (Hospitalization)
  Sender: FDA-Public Use
  Company Number: TW-ABBVIE-20K-153-3258808-00

PATIENT
  Age: 80 Year
  Sex: Female

DRUGS (13)
  1. HUMIRA [Suspect]
     Active Substance: ADALIMUMAB
     Indication: RHEUMATOID ARTHRITIS
     Route: 058
     Dates: start: 20170216, end: 20190408
  2. PREDNISOLONE. [Concomitant]
     Active Substance: PREDNISOLONE
     Indication: RHEUMATOID ARTHRITIS
     Dates: start: 20190624
  3. ARTELAC [Concomitant]
     Indication: VITREOUS HAEMORRHAGE
     Dates: start: 20170209
  4. GENDERMIN [Concomitant]
     Indication: VITREOUS HAEMORRHAGE
     Dates: start: 20190624
  5. CLOBETASOL [Concomitant]
     Active Substance: CLOBETASOL
     Indication: PROPHYLAXIS
     Dates: start: 20191014, end: 20191022
  6. NEURONTIN [Concomitant]
     Active Substance: GABAPENTIN
     Indication: PAIN
     Dates: start: 20170209
  7. CELEBREX [Concomitant]
     Active Substance: CELECOXIB
     Indication: RHEUMATOID ARTHRITIS
     Dates: start: 20170209
  8. MTX [Concomitant]
     Active Substance: METHOTREXATE SODIUM
     Indication: RHEUMATOID ARTHRITIS
     Dates: start: 20191014, end: 20191022
  9. HUMIRA [Suspect]
     Active Substance: ADALIMUMAB
     Route: 058
     Dates: start: 20191014, end: 20191022
  10. SALICRET [Concomitant]
     Indication: PROPHYLAXIS
     Dates: start: 20190603, end: 20191022
  11. ULTRACET [Concomitant]
     Active Substance: ACETAMINOPHEN\TRAMADOL HYDROCHLORIDE
     Indication: PAIN
     Dates: start: 20191014
  12. ONEALFA [Concomitant]
     Active Substance: ALFACALCIDOL
     Indication: OSTEOPOROSIS
     Dates: start: 20180919
  13. FOLIC ACID. [Concomitant]
     Active Substance: FOLIC ACID
     Indication: PROPHYLAXIS
     Dates: start: 20170308

REACTIONS (10)
  - Hypertension [Unknown]
  - Endophthalmitis [Unknown]
  - Bone erosion [Unknown]
  - Tenosynovitis [Unknown]
  - Synovitis [Unknown]
  - Arthritis bacterial [Unknown]
  - Staphylococcal infection [Recovering/Resolving]
  - Staphylococcal infection [Recovering/Resolving]
  - Pneumonia [Unknown]
  - Candida infection [Recovering/Resolving]

NARRATIVE: CASE EVENT DATE: 20191023
